FAERS Safety Report 15305295 (Version 1)
Quarter: 2018Q3

REPORT INFORMATION
  Report Type: Spontaneous
  Country: ER (occurrence: ER)
  Receive Date: 20180822
  Receipt Date: 20180822
  Transmission Date: 20181010
  Serious: Yes (Other)
  Sender: FDA-Public Use
  Company Number: ER-UNICHEM PHARMACEUTICALS (USA) INC-UCM201806-000136

PATIENT
  Age: 65 Year
  Sex: Male

DRUGS (1)
  1. HYDROCHLOROTHIAZIDE. [Suspect]
     Active Substance: HYDROCHLOROTHIAZIDE
     Indication: HYPERTENSION
     Route: 048
     Dates: start: 20150505

REACTIONS (3)
  - Deafness [Recovering/Resolving]
  - Nausea [Unknown]
  - Epigastric discomfort [Unknown]
